FAERS Safety Report 6555486-3 (Version None)
Quarter: 2010Q1

REPORT INFORMATION
  Report Type: 
  Country: None (occurrence: None)
  Receive Date: 20100128
  Receipt Date: 20100126
  Transmission Date: 20100710
  Serious: Yes (Death)
  Sender: FDA-Public Use
  Company Number: JP-ASTRAZENECA-2010SE03370

PATIENT
  Age: 72 Year
  Sex: Female

DRUGS (4)
  1. ARIMIDEX [Suspect]
     Indication: BREAST CANCER
     Route: 048
  2. ACTOS [Suspect]
     Dosage: DOSE UNKNOWN
     Route: 048
  3. RENIVACE [Suspect]
     Dosage: DOSE UNKNOWN
     Route: 048
  4. FASTIC [Suspect]
     Dosage: DOSE UNKNOWN
     Route: 048

REACTIONS (1)
  - DEATH [None]
